FAERS Safety Report 17281310 (Version 1)
Quarter: 2020Q1

REPORT INFORMATION
  Report Type: Spontaneous
  Country: GB (occurrence: GB)
  Receive Date: 20200117
  Receipt Date: 20200117
  Transmission Date: 20200409
  Serious: Yes (Life-Threatening)
  Sender: FDA-Public Use
  Company Number: GB-TEVA-2020-GB-1168505

PATIENT
  Age: 72 Year
  Sex: Female
  Weight: 98 kg

DRUGS (15)
  1. NICORANDIL [Concomitant]
     Active Substance: NICORANDIL
     Dates: start: 20190528
  2. ANGITIL XL [Concomitant]
     Dosage: BRANDED ALTERNATIVE
     Dates: start: 20190326, end: 20190927
  3. ROSUVASTATIN. [Concomitant]
     Active Substance: ROSUVASTATIN
     Dates: start: 20190205
  4. CETIRIZINE [Concomitant]
     Active Substance: CETIRIZINE HYDROCHLORIDE
     Dosage: TWICE DAILY
     Dates: start: 20191216
  5. FENBID [Concomitant]
     Active Substance: IBUPROFEN
     Dosage: APPLY 3-4 TIMES/DAY
     Dates: start: 20191212
  6. OMEPRAZOLE. [Concomitant]
     Active Substance: OMEPRAZOLE
     Dosage: EVERY MORNING TO BE TAKEN BEFORE FOOD
     Dates: start: 20190326, end: 20191216
  7. ISPAGHULA EXTRACT\PSYLLIUM [Concomitant]
     Active Substance: HERBALS\PLANTAGO OVATA SEED\PLANTAGO SEED
     Dates: start: 20190717
  8. TRAMADOL. [Concomitant]
     Active Substance: TRAMADOL
     Dates: start: 20191204, end: 20191211
  9. ACETYLSALICYLIC ACID [Concomitant]
     Active Substance: ASPIRIN
     Dates: start: 20190326
  10. FORTISIP [Concomitant]
     Active Substance: CARBOHYDRATES\FATTY ACIDS\MINERALS\PROTEIN\VITAMINS
     Dates: start: 20191212
  11. COCODAMOL [Concomitant]
     Active Substance: ACETAMINOPHEN\CODEINE PHOSPHATE
     Dates: start: 20191108, end: 20191122
  12. FEXOFENADINE [Concomitant]
     Active Substance: FEXOFENADINE HYDROCHLORIDE
     Dates: start: 20191216
  13. LISINOPRIL. [Suspect]
     Active Substance: LISINOPRIL
     Dosage: 5 MILLIGRAM
     Route: 065
     Dates: start: 20190205, end: 20191212
  14. ADIZEM [Concomitant]
     Active Substance: DILTIAZEM HYDROCHLORIDE
     Dates: start: 20190927
  15. PREDNISOLONE. [Concomitant]
     Active Substance: PREDNISOLONE
     Dates: start: 20191114, end: 20191119

REACTIONS (1)
  - Laryngeal oedema [Recovered/Resolved]
